FAERS Safety Report 10653341 (Version 2)
Quarter: 2014Q4

REPORT INFORMATION
  Report Type: Report from Study
  Country: GR (occurrence: GR)
  Receive Date: 20141215
  Receipt Date: 20141215
  Transmission Date: 20150529
  Serious: Yes (Life-Threatening, Hospitalization)
  Sender: FDA-Public Use
  Company Number: GR-AMGEN-2014-2442

PATIENT
  Age: 67 Year
  Sex: Male
  Weight: 116 kg

DRUGS (20)
  1. CARFILZOMIB [Suspect]
     Active Substance: CARFILZOMIB
     Indication: PLASMA CELL MYELOMA
     Dosage: FREQ. TEXT: DAYS 1, 2
     Route: 042
     Dates: start: 20130319, end: 20130320
  2. DEXAMETHASONE. [Suspect]
     Active Substance: DEXAMETHASONE
     Dosage: FREQUENCY: 8 EVERY 28 DAYS; FREQ. TEXT: DAYS 1,2,8,9,15,16,22,23, EVERY 28 DAYS
     Route: 042
     Dates: start: 20130722, end: 20141104
  3. HUMALOG [Concomitant]
     Active Substance: INSULIN LISPRO
     Indication: DIABETES MELLITUS
     Route: 058
     Dates: start: 201202, end: 20141104
  4. AUGMENTIN [Concomitant]
     Active Substance: AMOXICILLIN\CLAVULANATE POTASSIUM
     Indication: PYREXIA
     Route: 048
     Dates: start: 20141104, end: 20141105
  5. CARFILZOMIB [Suspect]
     Active Substance: CARFILZOMIB
     Dosage: FREQUENCY: 6 EVERY 28 DAYS; FREQ. TEXT: DAYS 1,2,8, 9, 15, 16EVERY 28 DAYS
     Route: 042
     Dates: start: 20130416, end: 20141104
  6. CARFILZOMIB [Suspect]
     Active Substance: CARFILZOMIB
  7. EUTHYROX [Concomitant]
     Active Substance: LEVOTHYROXINE SODIUM
     Indication: HYPOTHYROIDISM
     Route: 048
     Dates: start: 201205, end: 20141104
  8. CARFILZOMIB [Suspect]
     Active Substance: CARFILZOMIB
     Dosage: FREQUENCY: 4 EVERY 21 DAYS; FREQ. TEXT: DAYS 8, 9, 15, 16
     Route: 042
     Dates: start: 20130326, end: 20130403
  9. CARFILZOMIB [Suspect]
     Active Substance: CARFILZOMIB
  10. DEXAMETHASONE. [Suspect]
     Active Substance: DEXAMETHASONE
     Indication: PLASMA CELL MYELOMA
     Dosage: FREQUENCY: 8 EVERY 28 DAYS; FREQ. TEXT: DAYS 1,2,8,9,15,16,22,23, EVERY 28 DAYS
     Route: 042
     Dates: start: 20130319, end: 20130710
  11. SALOSPIR [Concomitant]
     Active Substance: ASPIRIN\CAFFEINE
     Indication: THROMBOSIS PROPHYLAXIS
     Route: 048
     Dates: start: 200902, end: 20141104
  12. HUMULIN NOS [Concomitant]
     Active Substance: INSULIN HUMAN
     Indication: DIABETES MELLITUS
     Route: 058
     Dates: start: 201002, end: 20141105
  13. VALACYCLOVIR [Concomitant]
     Active Substance: VALACYCLOVIR HYDROCHLORIDE
     Indication: ANTIVIRAL PROPHYLAXIS
     Dosage: UNK
     Route: 048
     Dates: start: 20130319, end: 20141204
  14. NEURONTIN [Concomitant]
     Active Substance: GABAPENTIN
     Indication: PERIPHERAL SENSORY NEUROPATHY
     Route: 048
     Dates: start: 201205, end: 20141105
  15. CARFILZOMIB [Suspect]
     Active Substance: CARFILZOMIB
  16. CARFILZOMIB [Suspect]
     Active Substance: CARFILZOMIB
  17. DEXAMETHASONE. [Suspect]
     Active Substance: DEXAMETHASONE
     Dosage: 20 MG, PER CHEMO REGIM
     Dates: start: 20130319, end: 20141104
  18. OMNIC TOCAS [Concomitant]
     Indication: BENIGN PROSTATIC HYPERPLASIA
     Route: 048
     Dates: start: 201201
  19. LANSOPRAZOLE. [Concomitant]
     Active Substance: LANSOPRAZOLE
     Indication: PROPHYLAXIS
     Dosage: UNK
     Route: 048
     Dates: start: 20130319, end: 20141204
  20. HIPNOSEDON [Concomitant]
     Indication: INSOMNIA
     Dosage: UNK
     Route: 048
     Dates: start: 20140217

REACTIONS (1)
  - Thrombotic thrombocytopenic purpura [Recovered/Resolved]

NARRATIVE: CASE EVENT DATE: 20141105
